FAERS Safety Report 5095789-5 (Version None)
Quarter: 2006Q3

REPORT INFORMATION
  Report Type: 
  Country: None (occurrence: None)
  Receive Date: 20060905
  Receipt Date: 20060823
  Transmission Date: 20061208
  Serious: Yes (Other)
  Sender: FDA-Public Use
  Company Number: PHNR2006AU01092

PATIENT
  Sex: Male

DRUGS (3)
  1. STALEVO 100 [Suspect]
     Dosage: 150MG X 3 DAILY
     Dates: start: 20050101
  2. STALEVO 100 [Suspect]
     Dosage: 150MG X 2 DAILY
  3. STALEVO 100 [Suspect]
     Dosage: 150 MG DAILY

REACTIONS (5)
  - ABNORMAL BEHAVIOUR [None]
  - CHEST PAIN [None]
  - CONSTIPATION [None]
  - PANIC ATTACK [None]
  - SWELLING [None]
